FAERS Safety Report 15338507 (Version 2)
Quarter: 2018Q3

REPORT INFORMATION
  Report Type: Spontaneous
  Country: US (occurrence: US)
  Receive Date: 20180831
  Receipt Date: 20180911
  Transmission Date: 20181010
  Serious: Yes (Other)
  Sender: FDA-Public Use
  Company Number: US-ALLERGAN-1842013US

PATIENT
  Sex: Female

DRUGS (5)
  1. ARMOUR THYROID [Suspect]
     Active Substance: THYROID, PORCINE
     Dosage: 30 MG, QD
     Route: 048
  2. ARMOUR THYROID [Suspect]
     Active Substance: THYROID, PORCINE
     Dosage: 60 MG, QD
     Route: 048
  3. ARMOUR THYROID [Suspect]
     Active Substance: THYROID, PORCINE
     Indication: HYPOTHYROIDISM
     Dosage: 15 MG, QD
     Route: 048
     Dates: start: 201808
  4. ARMOUR THYROID [Suspect]
     Active Substance: THYROID, PORCINE
     Dosage: 45 MG (1/15 MG TABLET AND 1/30 MG TABLET), QD
     Route: 048
  5. ANTI ANXIETY MEDICATIONS [Concomitant]
     Indication: ANXIETY
     Dosage: UNK, PRN
     Route: 048

REACTIONS (10)
  - Chills [Recovered/Resolved]
  - Palpitations [Recovered/Resolved]
  - Blood test abnormal [Unknown]
  - Feeling hot [Recovered/Resolved]
  - Weight increased [Recovered/Resolved]
  - Dyspnoea [Recovered/Resolved]
  - Syncope [Recovered/Resolved]
  - Vertigo [Recovered/Resolved]
  - Constipation [Recovered/Resolved]
  - Wrong technique in product usage process [Unknown]

NARRATIVE: CASE EVENT DATE: 20180528
